FAERS Safety Report 14307374 (Version 3)
Quarter: 2018Q1

REPORT INFORMATION
  Report Type: Spontaneous
  Country: US (occurrence: US)
  Receive Date: 20171220
  Receipt Date: 20180117
  Transmission Date: 20180509
  Serious: No
  Sender: FDA-Public Use
  Company Number: US-PFIZER INC-2017179255

PATIENT
  Age: 47 Year
  Sex: Female
  Weight: 137 kg

DRUGS (26)
  1. KLOR-CON [Concomitant]
     Active Substance: POTASSIUM CHLORIDE
     Indication: ELECTROLYTE SUBSTITUTION THERAPY
     Dosage: 10 MEQ, DAILY
     Route: 048
  2. GLUCOPHAGE XR [Concomitant]
     Active Substance: METFORMIN HYDROCHLORIDE
     Indication: DIABETES MELLITUS
     Dosage: 500 MG, 1X/DAY (NIGHTLY)
     Route: 048
     Dates: start: 20170221
  3. SIMVASTATIN. [Concomitant]
     Active Substance: SIMVASTATIN
     Indication: HYPERLIPIDAEMIA
     Dosage: 20 MG, 1X/DAY (NIGHTLY)
     Dates: start: 20170619
  4. CALCIUM [Concomitant]
     Active Substance: CALCIUM
     Dosage: UNK
  5. LYRICA [Suspect]
     Active Substance: PREGABALIN
     Indication: FIBROMYALGIA
     Dosage: 75 MG, 2X/DAY
     Dates: start: 201706
  6. LYRICA [Suspect]
     Active Substance: PREGABALIN
     Indication: DIABETIC NEUROPATHY
     Dosage: 75 MG, TWICE DAILY (HS + OC DURING DAY)
     Dates: start: 201706
  7. NORVASC [Concomitant]
     Active Substance: AMLODIPINE BESYLATE
     Indication: HYPERTENSION
     Dosage: 5 MG, DAILY
     Route: 048
  8. FLEXERIL [Concomitant]
     Active Substance: CYCLOBENZAPRINE HYDROCHLORIDE
     Indication: MUSCLE SPASMS
     Dosage: 5 MG, AS NEEDED (TAKE 1 TABLET (5 MG TOTAL) BY MOUTH 3 (THREE) TIMES DAILY )
     Route: 048
     Dates: start: 20170519
  9. LEVOTHROID [Concomitant]
     Active Substance: LEVOTHYROXINE SODIUM
     Dosage: 300 UG, DAILY
     Route: 048
  10. CODEINE [Concomitant]
     Active Substance: CODEINE
     Indication: PAIN
     Dosage: UNK
  11. IRON [Concomitant]
     Active Substance: IRON
     Dosage: 325 MG, UNK
     Route: 048
  12. CATAPRES [Concomitant]
     Active Substance: CLONIDINE HYDROCHLORIDE
     Indication: BLOOD PRESSURE ABNORMAL
     Dosage: 0.1 MG, AS NEEDED
     Route: 048
     Dates: start: 20170209
  13. MEVACOR [Concomitant]
     Active Substance: LOVASTATIN
     Dosage: 20 MG, 1X/DAY (NIGHTLY)
     Route: 048
  14. TYLENOL / CODEINE #3 [Concomitant]
     Indication: PAIN
     Dosage: 1 TABLET BY MOUTH 3 (THREE) TIMES DAILY AS NEEDED
     Route: 048
     Dates: start: 20170420
  15. LYRICA [Suspect]
     Active Substance: PREGABALIN
     Indication: NEURALGIA
     Dosage: 75 MG, 1X/DAY(CAPSULE IN THE EVENING)
     Route: 048
     Dates: start: 201706
  16. METFORMIN ER [Concomitant]
     Active Substance: METFORMIN HYDROCHLORIDE
     Dosage: UNK
  17. LEVOTHYROXINE. [Concomitant]
     Active Substance: LEVOTHYROXINE
     Indication: HYPOTHYROIDISM
     Dosage: 200 MG, DAILY
     Dates: start: 20130113
  18. LYRICA [Suspect]
     Active Substance: PREGABALIN
     Indication: SYSTEMIC LUPUS ERYTHEMATOSUS
     Dosage: 75 MG, TWO TIMES DAILY
     Route: 048
     Dates: start: 20170420
  19. ASPIRIN. [Concomitant]
     Active Substance: ASPIRIN
     Dosage: 81 MG, DAILY
     Route: 048
  20. FLEXERIL [Concomitant]
     Active Substance: CYCLOBENZAPRINE HYDROCHLORIDE
     Indication: MUSCLE TIGHTNESS
  21. ZAROXOLYN [Concomitant]
     Active Substance: METOLAZONE
     Indication: OEDEMA
     Dosage: 5 MG, DAILY (TAKE 1 HOUR BEFORE LASIX)
     Dates: start: 20170209
  22. KLOR-CON [Concomitant]
     Active Substance: POTASSIUM CHLORIDE
     Dosage: 10 MG, DAILY
     Route: 048
     Dates: start: 20170321
  23. TYLENOL / CODEINE #3 [Concomitant]
     Indication: SYSTEMIC LUPUS ERYTHEMATOSUS
  24. SYNTHROID [Concomitant]
     Active Substance: LEVOTHYROXINE SODIUM
     Dosage: 300 UG, DAILY
     Route: 048
  25. NORVASC [Concomitant]
     Active Substance: AMLODIPINE BESYLATE
     Dosage: 10 MG, DAILY
     Dates: start: 20130115
  26. LASIX [Concomitant]
     Active Substance: FUROSEMIDE
     Indication: OEDEMA
     Dosage: 40 MG, DAILY
     Route: 048
     Dates: start: 20170209

REACTIONS (5)
  - Somnolence [Not Recovered/Not Resolved]
  - Depressed mood [Recovered/Resolved]
  - Intentional product misuse [Unknown]
  - Therapeutic response unexpected [Not Recovered/Not Resolved]
  - Pre-existing condition improved [Not Recovered/Not Resolved]

NARRATIVE: CASE EVENT DATE: 2017
